FAERS Safety Report 25497942 (Version 1)
Quarter: 2025Q3

REPORT INFORMATION
  Report Type: Spontaneous
  Country: US (occurrence: US)
  Receive Date: 20250701
  Receipt Date: 20250701
  Transmission Date: 20251020
  Serious: No
  Sender: CADILA
  Company Number: US-CPL-004622

PATIENT
  Sex: Female

DRUGS (1)
  1. VERAPAMIL [Suspect]
     Active Substance: VERAPAMIL HYDROCHLORIDE
     Indication: Tachycardia
     Dosage: HYDROCHLORIDE EXTENDED-RELEASE TABLETS?STRENGTH: 240 MG
     Dates: start: 202408

REACTIONS (1)
  - Flushing [Not Recovered/Not Resolved]

NARRATIVE: CASE EVENT DATE: 20240825
